FAERS Safety Report 18117678 (Version 1)
Quarter: 2020Q3

REPORT INFORMATION
  Report Type: Spontaneous
  Country: CH (occurrence: CH)
  Receive Date: 20200806
  Receipt Date: 20200806
  Transmission Date: 20201103
  Serious: Yes (Hospitalization)
  Sender: FDA-Public Use
  Company Number: CH-ROCHE-2647976

PATIENT
  Sex: Female

DRUGS (1)
  1. VALCYTE [Suspect]
     Active Substance: VALGANCICLOVIR HYDROCHLORIDE
     Indication: HEPATOCELLULAR CARCINOMA
     Route: 048

REACTIONS (3)
  - Hypovolaemic shock [Not Recovered/Not Resolved]
  - Campylobacter gastroenteritis [Not Recovered/Not Resolved]
  - Agranulocytosis [Not Recovered/Not Resolved]
